FAERS Safety Report 4982531-9 (Version None)
Quarter: 2006Q2

REPORT INFORMATION
  Report Type: 
  Country: None (occurrence: None)
  Receive Date: 20060421
  Receipt Date: 20060412
  Transmission Date: 20061013
  Serious: Yes (Disabling, Other)
  Sender: FDA-Public Use
  Company Number: 2006050350

PATIENT
  Sex: Female
  Weight: 61.2356 kg

DRUGS (8)
  1. NEURONTIN [Suspect]
     Indication: CONVULSION
     Dosage: 1800 MG (600 MG, 3 IN 1 D), ORAL
     Route: 048
     Dates: end: 20060101
  2. NEURONTIN [Suspect]
     Indication: PAIN
     Dosage: 1800 MG (600 MG, 3 IN 1 D), ORAL
     Route: 048
     Dates: end: 20060101
  3. GABAPENTIN [Suspect]
     Indication: CONVULSION
     Dates: start: 20050101, end: 20050101
  4. GABAPENTIN [Suspect]
     Indication: PAIN
     Dates: start: 20050101, end: 20050101
  5. AMBIEN [Concomitant]
  6. PAXIL [Concomitant]
  7. AMITRIPTYLINE (AMITRIPTYILINE) [Concomitant]
  8. ACIPHEX [Concomitant]

REACTIONS (13)
  - ANXIETY [None]
  - DISABILITY [None]
  - DISSOCIATION [None]
  - DRUG EFFECT DECREASED [None]
  - FEELING JITTERY [None]
  - FIBROMYALGIA [None]
  - GASTROOESOPHAGEAL REFLUX DISEASE [None]
  - INSOMNIA [None]
  - NERVOUSNESS [None]
  - PAIN [None]
  - PARALYSIS [None]
  - PHARMACEUTICAL PRODUCT COMPLAINT [None]
  - WEIGHT INCREASED [None]
